FAERS Safety Report 14266295 (Version 1)
Quarter: 2017Q4

REPORT INFORMATION
  Report Type: Spontaneous
  Country: US (occurrence: US)
  Receive Date: 20171210
  Receipt Date: 20171210
  Transmission Date: 20180321
  Serious: Yes (Hospitalization)
  Sender: FDA-Public Use
  Company Number: PHHY2017US181488

PATIENT
  Age: 25 Year
  Sex: Female

DRUGS (9)
  1. CLINDAMYCIN. [Suspect]
     Active Substance: CLINDAMYCIN
     Indication: VULVOVAGINAL DISCOMFORT
  2. HYDROCORTISONE. [Suspect]
     Active Substance: HYDROCORTISONE
     Indication: VAGINAL DISCHARGE
  3. CLINDAMYCIN. [Suspect]
     Active Substance: CLINDAMYCIN
     Indication: VAGINAL DISCHARGE
  4. CLINDAMYCIN. [Suspect]
     Active Substance: CLINDAMYCIN
     Indication: VULVOVAGINAL PAIN
  5. HYDROCORTISONE. [Suspect]
     Active Substance: HYDROCORTISONE
     Indication: VULVOVAGINAL PAIN
  6. RITUXIMAB. [Suspect]
     Active Substance: RITUXIMAB
     Indication: ANTI-NEUTROPHIL CYTOPLASMIC ANTIBODY POSITIVE VASCULITIS
     Dosage: UNK
     Route: 065
  7. CLINDAMYCIN. [Suspect]
     Active Substance: CLINDAMYCIN
     Indication: VAGINAL INFECTION
     Dosage: UNK
     Route: 067
  8. HYDROCORTISONE. [Suspect]
     Active Substance: HYDROCORTISONE
     Indication: VAGINAL INFECTION
     Dosage: UNK
     Route: 067
  9. HYDROCORTISONE. [Suspect]
     Active Substance: HYDROCORTISONE
     Indication: VULVOVAGINAL DISCOMFORT

REACTIONS (6)
  - Vaginal infection [Recovering/Resolving]
  - Vaginal discharge [Recovering/Resolving]
  - Therapeutic response decreased [Unknown]
  - Vulvovaginal discomfort [Recovering/Resolving]
  - Vulvovaginal pain [Recovering/Resolving]
  - Product use in unapproved indication [Unknown]
